FAERS Safety Report 6139583-2 (Version None)
Quarter: 2009Q1

REPORT INFORMATION
  Report Type: 
  Country: None (occurrence: None)
  Receive Date: 20090330
  Receipt Date: 20080428
  Transmission Date: 20090719
  Serious: Yes (Other)
  Sender: FDA-Public Use
  Company Number: 170904USA

PATIENT
  Age: 58 Year
  Sex: Female

DRUGS (1)
  1. TAMOXIFEN CITRATE [Suspect]
     Indication: BREAST CANCER
     Dosage: 20 MG (20 MG, 1 IN 1 D)
     Dates: start: 20050101

REACTIONS (1)
  - MACULAR DEGENERATION [None]
